FAERS Safety Report 8759729 (Version 2)
Quarter: 2012Q4

REPORT INFORMATION
  Report Type: Report from Study
  Country: GB (occurrence: GB)
  Receive Date: 20120829
  Receipt Date: 20121031
  Transmission Date: 20130627
  Serious: Yes (Death, Hospitalization, Other)
  Sender: FDA-Public Use
  Company Number: GB-009507513-1101GBR00076

PATIENT
  Age: 79 Year
  Sex: Male

DRUGS (1)
  1. VORINOSTAT [Suspect]
     Indication: ESSENTIAL THROMBOCYTHAEMIA
     Route: 048

REACTIONS (3)
  - Acute myeloid leukaemia [Not Recovered/Not Resolved]
  - Renal failure [Recovering/Resolving]
  - Death [Fatal]
